FAERS Safety Report 25191383 (Version 1)
Quarter: 2025Q2

REPORT INFORMATION
  Report Type: Spontaneous
  Country: FR (occurrence: FR)
  Receive Date: 20250411
  Receipt Date: 20250411
  Transmission Date: 20250716
  Serious: Yes (Other)
  Sender: AUROBINDO
  Company Number: FR-AFSSAPS-AVMP2025000079

PATIENT
  Age: 28 Year
  Sex: Male

DRUGS (1)
  1. ALPRAZOLAM [Suspect]
     Active Substance: ALPRAZOLAM
     Indication: Product used for unknown indication
     Dosage: 4.5 DOSAGE FORM, ONCE A DAY (APPROXIMATELY 4.5 TABLETS/DAY) (STARTED ON 2025)
     Route: 048

REACTIONS (1)
  - Drug use disorder [Unknown]
